FAERS Safety Report 7491293-5 (Version None)
Quarter: 2011Q2

REPORT INFORMATION
  Report Type: 
  Country: None (occurrence: None)
  Receive Date: 20110519
  Receipt Date: 20110315
  Transmission Date: 20111010
  Serious: Yes (Hospitalization)
  Sender: FDA-Public Use
  Company Number: B0706762A

PATIENT
  Sex: Male

DRUGS (1)
  1. PROMACTA [Suspect]
     Indication: IDIOPATHIC THROMBOCYTOPENIC PURPURA
     Dosage: 37.5MG PER DAY
     Route: 048
     Dates: start: 20110201, end: 20110501

REACTIONS (2)
  - APLASTIC ANAEMIA [None]
  - PYREXIA [None]
